FAERS Safety Report 24379870 (Version 1)
Quarter: 2024Q3

REPORT INFORMATION
  Report Type: Spontaneous
  Country: US (occurrence: US)
  Receive Date: 20240930
  Receipt Date: 20240930
  Transmission Date: 20241017
  Serious: Yes (Other)
  Sender: PFIZER
  Company Number: US-PFIZER INC-202400265061

PATIENT
  Sex: Male

DRUGS (1)
  1. ADCETRIS [Suspect]
     Active Substance: BRENTUXIMAB VEDOTIN
     Dosage: CYCLE 14 DOSE REDUCED TO 1MG/KG

REACTIONS (1)
  - Neuropathy peripheral [Not Recovered/Not Resolved]
